FAERS Safety Report 7090148-8 (Version None)
Quarter: 2010Q4

REPORT INFORMATION
  Report Type: 
  Country: None (occurrence: None)
  Receive Date: 20101105
  Receipt Date: 20101105
  Transmission Date: 20110411
  Serious: Yes (Life-Threatening, Hospitalization)
  Sender: FDA-Public Use
  Company Number: None

PATIENT
  Age: 54 Year
  Sex: Male
  Weight: 90.7194 kg

DRUGS (2)
  1. INTRON A [Suspect]
     Indication: MALIGNANT MELANOMA STAGE II
     Dosage: 100 MU (2ML) X 2 SUB Q
     Route: 058
     Dates: start: 20101024
  2. INTRON A [Suspect]
     Indication: MALIGNANT MELANOMA STAGE II
     Dosage: 100 MU (2ML) X 2 SUB Q
     Route: 058
     Dates: start: 20101026

REACTIONS (3)
  - INCORRECT DOSE ADMINISTERED [None]
  - INFLUENZA LIKE ILLNESS [None]
  - PRODUCT LABEL CONFUSION [None]
